FAERS Safety Report 24575956 (Version 3)
Quarter: 2024Q4

REPORT INFORMATION
  Report Type: Spontaneous
  Country: US (occurrence: US)
  Receive Date: 20241104
  Receipt Date: 20241213
  Transmission Date: 20250115
  Serious: Yes (Death, Disabling, Other)
  Sender: REGENERON
  Company Number: US-REGENERON PHARMACEUTICALS, INC.-2024-146805

PATIENT
  Sex: Male

DRUGS (1)
  1. EYLEA [Suspect]
     Active Substance: AFLIBERCEPT
     Indication: Product used for unknown indication
     Dosage: UNK (FORMULATION: UNKNOWN)
     Route: 065

REACTIONS (7)
  - Renal failure [Fatal]
  - Organ failure [Fatal]
  - Blindness [Unknown]
  - Abnormal loss of weight [Unknown]
  - Depression [Unknown]
  - Decreased appetite [Unknown]
  - Illness [Unknown]

NARRATIVE: CASE EVENT DATE: 20220101
